FAERS Safety Report 25578559 (Version 1)
Quarter: 2025Q3

REPORT INFORMATION
  Report Type: Spontaneous
  Country: US (occurrence: US)
  Receive Date: 20250718
  Receipt Date: 20250718
  Transmission Date: 20251021
  Serious: No
  Sender: BAYER HEALTHCARE PHARMACEUTICALS INC.
  Company Number: US-BAYER-2025A095427

PATIENT
  Sex: Female

DRUGS (4)
  1. CIPRO [Suspect]
     Active Substance: CIPROFLOXACIN HYDROCHLORIDE
  2. ALLOPURINOL [Concomitant]
     Active Substance: ALLOPURINOL
  3. LOSARTAN [Concomitant]
     Active Substance: LOSARTAN
  4. MECLIZINE [Concomitant]
     Active Substance: MECLIZINE HYDROCHLORIDE

REACTIONS (2)
  - Throat tightness [None]
  - Dyspnoea [None]
